FAERS Safety Report 21158962 (Version 1)
Quarter: 2022Q3

REPORT INFORMATION
  Report Type: Spontaneous
  Country: US (occurrence: US)
  Receive Date: 20220802
  Receipt Date: 20220802
  Transmission Date: 20221026
  Serious: Yes (Other)
  Sender: FDA-Public Use
  Company Number: US-CADILA HEALTHCARE LIMITED-US-ZYDUS-080878

PATIENT

DRUGS (4)
  1. MODAFINIL [Suspect]
     Active Substance: MODAFINIL
     Indication: Narcolepsy
     Dosage: UNK
     Route: 065
     Dates: start: 2008
  2. MODAFINIL [Suspect]
     Active Substance: MODAFINIL
     Dosage: UNK
     Route: 065
     Dates: start: 202105
  3. ARMODAFINIL [Concomitant]
     Active Substance: ARMODAFINIL
     Indication: Narcolepsy
     Dosage: 250 MILLIGRAM
     Route: 065
     Dates: start: 2013, end: 2014
  4. METHYLPHENIDATE [Concomitant]
     Active Substance: METHYLPHENIDATE
     Indication: Narcolepsy
     Dosage: UNK
     Route: 065
     Dates: start: 2014

REACTIONS (2)
  - Cognitive disorder [Unknown]
  - Amnesia [Unknown]
